FAERS Safety Report 6395872-8 (Version None)
Quarter: 2009Q4

REPORT INFORMATION
  Report Type: 
  Country: None (occurrence: None)
  Receive Date: 20091009
  Receipt Date: 20090801
  Transmission Date: 20100525
  Serious: No
  Sender: FDA-Public Use
  Company Number: A0800138A

PATIENT
  Sex: Female

DRUGS (2)
  1. TYKERB [Suspect]
     Indication: DRUG USE FOR UNKNOWN INDICATION
     Dosage: 2TAB PER DAY
     Dates: start: 20090624
  2. XELODA [Suspect]
     Indication: DRUG USE FOR UNKNOWN INDICATION
     Dates: start: 20090722

REACTIONS (2)
  - MUSCULAR WEAKNESS [None]
  - NAUSEA [None]
